FAERS Safety Report 9308628 (Version 2)
Quarter: 2013Q2

REPORT INFORMATION
  Report Type: Spontaneous
  Country: RU (occurrence: RU)
  Receive Date: 20130524
  Receipt Date: 20130606
  Transmission Date: 20140414
  Serious: Yes (Other)
  Sender: FDA-Public Use
  Company Number: PHHY2013RU044184

PATIENT
  Age: 54 Year
  Sex: Female

DRUGS (1)
  1. MIACALCIC [Suspect]
     Indication: FOOT FRACTURE
     Dosage: 1 ML, UNK
     Route: 030

REACTIONS (13)
  - Convulsion [Recovered/Resolved]
  - Tremor [Unknown]
  - Dizziness [Unknown]
  - Muscle spasms [Recovered/Resolved]
  - Depressed level of consciousness [Unknown]
  - Asthenia [Unknown]
  - Dehydration [Recovered/Resolved]
  - Decreased appetite [Recovered/Resolved]
  - Myalgia [Recovered/Resolved]
  - Headache [Recovered/Resolved]
  - Vomiting [Recovered/Resolved]
  - Nausea [Unknown]
  - Toxicity to various agents [Unknown]
